FAERS Safety Report 21843072 (Version 1)
Quarter: 2023Q1

REPORT INFORMATION
  Report Type: Spontaneous
  Country: US (occurrence: US)
  Receive Date: 20230110
  Receipt Date: 20230110
  Transmission Date: 20230418
  Serious: Yes (Death, Hospitalization, Other)
  Sender: FDA-Public Use
  Company Number: US-PFIZER INC-202300008651

PATIENT
  Age: 88 Year
  Sex: Female
  Weight: 49.89 kg

DRUGS (1)
  1. VYNDAMAX [Suspect]
     Active Substance: TAFAMIDIS
     Indication: Cardiac amyloidosis
     Dosage: 61 MG

REACTIONS (8)
  - COVID-19 [Fatal]
  - Pneumonia legionella [Fatal]
  - Pneumonia [Fatal]
  - Dyspnoea [Unknown]
  - Cardiac pacemaker insertion [Unknown]
  - Weight decreased [Unknown]
  - Heart rate decreased [Unknown]
  - Urinary tract infection [Unknown]

NARRATIVE: CASE EVENT DATE: 20221115
